FAERS Safety Report 5071322-9 (Version None)
Quarter: 2006Q3

REPORT INFORMATION
  Report Type: 
  Country: None (occurrence: None)
  Receive Date: 20060804
  Receipt Date: 20051209
  Transmission Date: 20061208
  Serious: No
  Sender: FDA-Public Use
  Company Number: US-AMGEN-US160897

PATIENT
  Sex: Female

DRUGS (4)
  1. ARANESP [Suspect]
     Indication: RENAL TRANSPLANT
     Dates: start: 20050501, end: 20050601
  2. PREDNISONE TAB [Concomitant]
     Dates: start: 19950413
  3. CELLCEPT [Concomitant]
     Dates: start: 20040916
  4. PROGRAF [Concomitant]
     Dates: start: 19950413

REACTIONS (1)
  - DRUG INEFFECTIVE [None]
